FAERS Safety Report 21731824 (Version 5)
Quarter: 2023Q1

REPORT INFORMATION
  Report Type: Report from Study
  Country: US (occurrence: US)
  Receive Date: 20221215
  Receipt Date: 20230125
  Transmission Date: 20230418
  Serious: Yes (Other)
  Sender: FDA-Public Use
  Company Number: US-ABBVIE-4236281

PATIENT
  Sex: Female

DRUGS (22)
  1. VENCLEXTA [Suspect]
     Active Substance: VENETOCLAX
     Indication: Acute monocytic leukaemia
     Dosage: 4 TABLETS BY MOUTH ONCE A DAY.
     Route: 048
  2. VENCLEXTA [Suspect]
     Active Substance: VENETOCLAX
     Indication: Acute monocytic leukaemia
     Dosage: 2 TABLETS BY MOUTH
     Route: 048
  3. CAPTOPRIL [Suspect]
     Active Substance: CAPTOPRIL
     Indication: Product used for unknown indication
     Route: 048
  4. Clopidogrel 75 Milligram [Concomitant]
     Indication: Product used for unknown indication
     Dosage: FORM STRENGTH:75 MILLIGRAM
     Route: 048
  5. Lysine 500 Milligram [Concomitant]
     Indication: Product used for unknown indication
     Dosage: FORM STRENGTH: 500 MILLIGRAM
     Route: 048
  6. Nitroglycerin 0.4 Milligram [Concomitant]
     Indication: Product used for unknown indication
     Dosage: FORM STRENGTH: 0.4 MILLIGRAM
     Route: 060
  7. Atorvastatin 40 milligram [Concomitant]
     Indication: Product used for unknown indication
     Dosage: FORM STRENGTH: 40 MILLIGRAM
     Route: 048
  8. LOSARTAN 25 milligram [Concomitant]
     Indication: Product used for unknown indication
     Dosage: FORM STRENGTH: 25 MILLIGRAM
     Route: 048
  9. LIDOCAINE\PRILOCAINE [Concomitant]
     Active Substance: LIDOCAINE\PRILOCAINE
     Indication: Product used for unknown indication
     Dosage: APPLY TO PORT AREA APPROXIMATELY 60MIN PRIOR TO APPOINTMENT? 2.5-2.5% CREAM
     Route: 065
  10. Diphenhydramine HCL 25 Milligram [Concomitant]
     Indication: Product used for unknown indication
     Dosage: FORM STRENGTH: 25 MILLIGRAM
     Route: 048
  11. Alprazolam 0.25 milligram [Concomitant]
     Indication: Anxiety
     Dosage: FORM STRENGTH: 0.25 MILLIGRAM
     Route: 065
  12. Prochlorperazine maleate 10 milligram [Concomitant]
     Indication: Nausea
     Dosage: FORM STRENGTH: 10 MILLIGRAM
     Route: 048
  13. Temazepam 15 milligram [Concomitant]
     Indication: Product used for unknown indication
     Dosage: 1 CAPSULE AS NEEDED.?FORM STRENGTH: 15 MILLIGRAM
     Route: 048
  14. ASPIRIN [Concomitant]
     Active Substance: ASPIRIN
     Indication: Product used for unknown indication
     Dosage: DR
     Route: 065
  15. Furosemide 40 Milligram [Concomitant]
     Indication: Product used for unknown indication
     Dosage: TAKE 1 TABLET BY MOUTH AS NEEDED.?FORM STRENGTH: 40 MILLIGRAM
     Route: 048
  16. Carvedilol 3.125 milligram [Concomitant]
     Indication: Product used for unknown indication
     Dosage: FORM STRENGTH: 3.125 MILLIGRAM
     Route: 048
  17. Trazodone HCL 80 milligram [Concomitant]
     Indication: Product used for unknown indication
     Dosage: TAKE 1-3 TABLETS AT BEDTIME AS NEEDED?FORM STRENGTH: 80 MILLIGRAM
     Route: 048
  18. TYLENOL [Concomitant]
     Active Substance: ACETAMINOPHEN
     Indication: Product used for unknown indication
     Route: 065
  19. ESOMEPRAZOLE MAGNESIUM [Concomitant]
     Active Substance: ESOMEPRAZOLE MAGNESIUM
     Indication: Product used for unknown indication
     Dosage: 40MG DR
     Route: 065
  20. Atorvastatin 0.25 milligram [Concomitant]
     Indication: Product used for unknown indication
     Dosage: FORM STRENGTH: 0.25 MILLIGRAM
     Route: 048
  21. Ondansetron HCL 8 milligram [Concomitant]
     Indication: Nausea
     Dosage: FORM STRENGTH: 8 MG
     Route: 048
  22. Levothyroxine 75 Microgram [Concomitant]
     Indication: Product used for unknown indication
     Dosage: 75 ?G.?FORM STRENGTH: 75 MICROGRAM
     Route: 065

REACTIONS (2)
  - Transfusion [Unknown]
  - Drug interaction [Unknown]
